FAERS Safety Report 4630568-1 (Version None)
Quarter: 2005Q2

REPORT INFORMATION
  Report Type: 
  Country: None (occurrence: None)
  Receive Date: 20050405
  Receipt Date: 20050405
  Transmission Date: 20051028
  Serious: Yes (Hospitalization)
  Sender: FDA-Public Use
  Company Number: None

PATIENT
  Age: 64 Year
  Sex: Female

DRUGS (2)
  1. VENOFER [Suspect]
     Indication: ANAEMIA
     Dosage: 200MG / IN 100 NS IV X 2 DOSES
     Route: 042
     Dates: start: 20050326
  2. VENOFER [Suspect]
     Indication: ANAEMIA
     Dosage: 200MG / IN 100 NS IV X 2 DOSES
     Route: 042
     Dates: start: 20050330

REACTIONS (2)
  - CELLULITIS [None]
  - THROMBOPHLEBITIS SUPERFICIAL [None]
